FAERS Safety Report 4490375-X (Version None)
Quarter: 2004Q3

REPORT INFORMATION
  Report Type: 
  Country: None (occurrence: None)
  Receive Date: 20040921
  Receipt Date: 20031111
  Transmission Date: 20050211
  Serious: Yes (Hospitalization)
  Sender: FDA-Public Use
  Company Number: 163-20785-03110237

PATIENT
  Age: 50 Year
  Sex: Male
  Weight: 70.4 kg

DRUGS (13)
  1. THALOMID [Suspect]
     Indication: MULTIPLE MYELOMA
     Dosage: 50-200 MG, AT BEDTIME, ORAL
     Route: 048
     Dates: start: 20031014
  2. DOXIL [Suspect]
     Indication: MULTIPLE MYELOMA
     Dosage: 72 MG, ONCE EVERY 28 DAYS, INTRAVENOUS DRIP
     Route: 041
     Dates: start: 20031014
  3. VINCRISTINE [Suspect]
     Indication: MULTIPLE MYELOMA
     Dosage: 2 MG, ONCE EVERY 28 DAYS, INTRAVENOUS BOLUS
     Route: 040
     Dates: start: 20031014
  4. DECADRON [Suspect]
     Indication: MULTIPLE MYELOMA
     Dosage: 40 MG, EVERY 28 DAYS DAILY FOR 4 DAYS
     Dates: start: 20031014
  5. NEXIUM [Concomitant]
  6. TRIMOX [Concomitant]
  7. OXYCONTIN [Concomitant]
  8. ACYCLOVIR [Concomitant]
  9. COUMADIN [Concomitant]
  10. SKELAXIN [Concomitant]
  11. PEPCID [Concomitant]
  12. ENDOCET (OXYCOCET) [Concomitant]
  13. LOVENEX (HEPARIN-FRACTION, SODIUM SALT) [Concomitant]

REACTIONS (8)
  - COMPARTMENT SYNDROME [None]
  - DIZZINESS [None]
  - DYSPNOEA [None]
  - HAEMATOCRIT DECREASED [None]
  - HAEMOGLOBIN DECREASED [None]
  - OEDEMA PERIPHERAL [None]
  - PAIN [None]
  - PAIN IN EXTREMITY [None]
